FAERS Safety Report 5139252-1 (Version None)
Quarter: 2006Q4

REPORT INFORMATION
  Report Type: 
  Country: None (occurrence: None)
  Receive Date: 20061030
  Receipt Date: 20061002
  Transmission Date: 20070319
  Serious: Yes (Hospitalization, Other)
  Sender: FDA-Public Use
  Company Number: US-BRISTOL-MYERS SQUIBB COMPANY-13527759

PATIENT
  Sex: Female
  Weight: 64 kg

DRUGS (14)
  1. CETUXIMAB [Suspect]
     Indication: PANCREATIC CARCINOMA
     Route: 042
     Dates: start: 20060822, end: 20060822
  2. GEMZAR [Suspect]
     Indication: PANCREATIC CARCINOMA
     Route: 042
     Dates: start: 20040808, end: 20060808
  3. OXALIPLATIN [Concomitant]
     Dates: start: 20060808
  4. SYNTHROID [Concomitant]
     Route: 048
  5. NEXIUM [Concomitant]
     Route: 048
  6. MAGNESIUM OXIDE [Concomitant]
     Route: 048
  7. COMPAZINE [Concomitant]
     Route: 048
  8. ACTIGALL [Concomitant]
     Route: 048
  9. ZOFRAN [Concomitant]
  10. IMODIUM [Concomitant]
     Route: 048
  11. LOMOTIL [Concomitant]
     Route: 048
  12. HYDROCODONE BITARTRATE + ACETAMINOPHEN [Concomitant]
     Indication: PAIN
     Route: 048
  13. LEVOFLOXACIN [Concomitant]
     Route: 048
  14. ZYVOX [Concomitant]
     Route: 048

REACTIONS (9)
  - ABDOMINAL PAIN UPPER [None]
  - CHILLS [None]
  - CHOLECYSTITIS [None]
  - CHOLELITHIASIS [None]
  - ESCHERICHIA INFECTION [None]
  - LIVER ABSCESS [None]
  - NAUSEA [None]
  - PYREXIA [None]
  - URINARY TRACT INFECTION ENTEROCOCCAL [None]
